FAERS Safety Report 5592871-0 (Version None)
Quarter: 2008Q1

REPORT INFORMATION
  Report Type: 
  Country: None (occurrence: None)
  Receive Date: 20080115
  Receipt Date: 20080115
  Transmission Date: 20080703
  Serious: Yes (Disabling)
  Sender: FDA-Public Use
  Company Number: None

PATIENT
  Age: 16 Year
  Sex: Female
  Weight: 43.0917 kg

DRUGS (1)
  1. LITHIUM CARBONATE ER [Suspect]
     Indication: BIPOLAR DISORDER
     Dosage: 3 TABS QHS PO
     Route: 048

REACTIONS (3)
  - ANTIPSYCHOTIC DRUG LEVEL INCREASED [None]
  - CREATININE RENAL CLEARANCE DECREASED [None]
  - TREATMENT NONCOMPLIANCE [None]
